FAERS Safety Report 5290895-4 (Version None)
Quarter: 2007Q2

REPORT INFORMATION
  Report Type: 
  Country: None (occurrence: None)
  Receive Date: 20070409
  Receipt Date: 20070328
  Transmission Date: 20071010
  Serious: Yes (Hospitalization, Other)
  Sender: FDA-Public Use
  Company Number: JP-PFIZER INC-2007018626

PATIENT
  Sex: Male
  Weight: 54.9 kg

DRUGS (3)
  1. VFEND [Suspect]
     Indication: BRONCHOPULMONARY ASPERGILLOSIS
     Route: 042
     Dates: start: 20070219, end: 20070222
  2. VFEND [Suspect]
     Indication: BRONCHOPULMONARY ASPERGILLOSIS
     Route: 048
     Dates: start: 20070223, end: 20070302
  3. PASIL [Concomitant]
     Indication: PNEUMONIA
     Dosage: DAILY DOSE:1000MEQ
     Route: 042
     Dates: start: 20070219, end: 20070224

REACTIONS (1)
  - INTERSTITIAL LUNG DISEASE [None]
